FAERS Safety Report 21297507 (Version 2)
Quarter: 2022Q3

REPORT INFORMATION
  Report Type: Spontaneous
  Country: IN (occurrence: IN)
  Receive Date: 20220906
  Receipt Date: 20220923
  Transmission Date: 20221026
  Serious: Yes (Life-Threatening, Hospitalization, Other)
  Sender: FDA-Public Use
  Company Number: IN-drreddys-SPO/IND/22/0154167

PATIENT
  Age: 45 Year
  Sex: Male

DRUGS (3)
  1. VENLAFAXINE [Suspect]
     Active Substance: VENLAFAXINE HYDROCHLORIDE
     Indication: Depression
     Route: 048
  2. AMITRIPTYLINE [Concomitant]
     Active Substance: AMITRIPTYLINE
     Indication: Depression
     Route: 048
  3. AMITRIPTYLINE [Concomitant]
     Active Substance: AMITRIPTYLINE
     Route: 048

REACTIONS (8)
  - Klebsiella infection [Recovering/Resolving]
  - Acute kidney injury [Recovering/Resolving]
  - Atelectasis [Recovering/Resolving]
  - Pleural effusion [Recovering/Resolving]
  - Left ventricular dysfunction [Recovering/Resolving]
  - Cardiac failure [Recovering/Resolving]
  - Lung consolidation [Recovering/Resolving]
  - Hepatic function abnormal [Recovering/Resolving]
